FAERS Safety Report 17791142 (Version 2)
Quarter: 2020Q3

REPORT INFORMATION
  Report Type: Report from Study
  Country: US (occurrence: US)
  Receive Date: 20200514
  Receipt Date: 20200929
  Transmission Date: 20201102
  Serious: Yes (Hospitalization, Other)
  Sender: FDA-Public Use
  Company Number: US-ACCORD-181309

PATIENT

DRUGS (2)
  1. AZITHROMYCIN ANHYDROUS. [Suspect]
     Active Substance: AZITHROMYCIN ANHYDROUS
     Indication: COVID-19
     Dates: start: 2020, end: 2020
  2. HYDROXYCHLOROQUINE [Suspect]
     Active Substance: HYDROXYCHLOROQUINE
     Indication: COVID-19
     Dosage: TWICE ON DAY 1, THEN 400 MG DAILY ON DAYS 2 THROUGH 5
     Dates: start: 2020, end: 2020

REACTIONS (2)
  - Off label use [Unknown]
  - Torsade de pointes [Unknown]

NARRATIVE: CASE EVENT DATE: 2020
